FAERS Safety Report 19447677 (Version 1)
Quarter: 2021Q2

REPORT INFORMATION
  Report Type: Spontaneous
  Country: US (occurrence: US)
  Receive Date: 20210622
  Receipt Date: 20210622
  Transmission Date: 20210717
  Serious: No
  Sender: FDA-Public Use
  Company Number: US-THERAPEUTICSMD-2021TMD01102

PATIENT
  Age: 67 Year
  Sex: Female
  Weight: 83.9 kg

DRUGS (3)
  1. IMVEXXY [Suspect]
     Active Substance: ESTRADIOL
     Indication: VULVOVAGINAL BURNING SENSATION
     Dosage: 10 ?G, 2X/WEEK BEFORE BED
     Route: 067
     Dates: start: 20210215, end: 20210225
  2. WHOLE LIST OF MEDICATIONS [Concomitant]
  3. IMVEXXY [Suspect]
     Active Substance: ESTRADIOL
     Indication: VULVOVAGINAL DRYNESS

REACTIONS (4)
  - Oestradiol increased [Unknown]
  - Off label use [Recovered/Resolved]
  - Constipation [Recovered/Resolved]
  - Nausea [Recovered/Resolved]

NARRATIVE: CASE EVENT DATE: 20210215
